FAERS Safety Report 9264277 (Version 1)
Quarter: 2013Q2

REPORT INFORMATION
  Report Type: Spontaneous
  Country: US (occurrence: US)
  Receive Date: 20130430
  Receipt Date: 20130430
  Transmission Date: 20140414
  Serious: No
  Sender: FDA-Public Use
  Company Number: US-ASTRAZENECA-2013SE25389

PATIENT
  Age: 38 Year
  Sex: Female

DRUGS (1)
  1. NEXIUM [Suspect]
     Route: 048

REACTIONS (5)
  - Parkinson^s disease [Unknown]
  - Tremor [Unknown]
  - Neck pain [Unknown]
  - Back pain [Unknown]
  - Memory impairment [Unknown]
